FAERS Safety Report 10595857 (Version 2)
Quarter: 2014Q4

REPORT INFORMATION
  Report Type: Spontaneous
  Country: DE (occurrence: DE)
  Receive Date: 20141120
  Receipt Date: 20141120
  Transmission Date: 20150529
  Serious: Yes (Other)
  Sender: FDA-Public Use
  Company Number: DE-ASTELLAS-2014US016346

PATIENT
  Age: 31 Year
  Sex: Female
  Weight: 51 kg

DRUGS (20)
  1. VALCYTE [Concomitant]
     Active Substance: VALGANCICLOVIR HYDROCHLORIDE
     Indication: ANTIVIRAL PROPHYLAXIS
     Route: 048
     Dates: start: 20141016
  2. TACROLIMUS. [Interacting]
     Active Substance: TACROLIMUS
     Route: 065
     Dates: start: 20141018
  3. TACROLIMUS. [Interacting]
     Active Substance: TACROLIMUS
     Route: 065
     Dates: start: 20141015
  4. TIGECYCLINE [Interacting]
     Active Substance: TIGECYCLINE
     Indication: INFECTION
  5. COTRIM D.S. [Concomitant]
     Active Substance: SULFAMETHOXAZOLE\TRIMETHOPRIM
     Indication: PROPHYLAXIS
     Dosage: 960 MG, EVERY TWO DAYS
     Route: 048
     Dates: start: 20141007
  6. TACROLIMUS. [Interacting]
     Active Substance: TACROLIMUS
     Route: 065
     Dates: start: 20141013
  7. PREDNISOLONE. [Interacting]
     Active Substance: PREDNISOLONE
     Route: 048
  8. TACROLIMUS. [Interacting]
     Active Substance: TACROLIMUS
     Route: 065
     Dates: start: 20141007
  9. TIGECYCLINE [Interacting]
     Active Substance: TIGECYCLINE
     Indication: PYREXIA
     Route: 042
     Dates: start: 20141024, end: 20141106
  10. PREDNISOLONE. [Interacting]
     Active Substance: PREDNISOLONE
     Route: 048
  11. PREDNISOLONE. [Interacting]
     Active Substance: PREDNISOLONE
     Route: 065
  12. TACROLIMUS. [Interacting]
     Active Substance: TACROLIMUS
     Route: 065
     Dates: start: 20141026
  13. METAMIZOLE [Interacting]
     Active Substance: METAMIZOLE
     Indication: PYREXIA
     Route: 042
     Dates: start: 20141024, end: 20141028
  14. PREDNISOLONE. [Interacting]
     Active Substance: PREDNISOLONE
     Indication: PRODUCT USED FOR UNKNOWN INDICATION
     Route: 042
  15. PREDNISOLONE. [Interacting]
     Active Substance: PREDNISOLONE
     Route: 042
  16. PREDNISOLONE. [Interacting]
     Active Substance: PREDNISOLONE
     Route: 042
  17. CELLCEPT [Concomitant]
     Active Substance: MYCOPHENOLATE MOFETIL\MYCOPHENOLATE MOFETIL HYDROCHLORIDE
     Indication: IMMUNOSUPPRESSION
     Route: 048
     Dates: start: 20141002
  18. TACROLIMUS. [Suspect]
     Active Substance: TACROLIMUS
     Indication: RENAL AND PANCREAS TRANSPLANT
     Route: 065
     Dates: start: 20141003
  19. TACROLIMUS. [Interacting]
     Active Substance: TACROLIMUS
     Route: 065
     Dates: start: 20141020
  20. TACROLIMUS. [Interacting]
     Active Substance: TACROLIMUS
     Route: 065

REACTIONS (4)
  - Drug interaction [Unknown]
  - Pyrexia [Unknown]
  - Product use issue [Unknown]
  - Immunosuppressant drug level decreased [Recovered/Resolved]

NARRATIVE: CASE EVENT DATE: 20141027
